FAERS Safety Report 12691594 (Version 1)
Quarter: 2016Q3

REPORT INFORMATION
  Report Type: Spontaneous
  Country: US (occurrence: US)
  Receive Date: 20160826
  Receipt Date: 20160826
  Transmission Date: 20161109
  Serious: Yes (Life-Threatening, Hospitalization, Disabling, Other)
  Sender: FDA-Public Use
  Company Number: US-GLAXOSMITHKLINE-US2016124325

PATIENT
  Sex: Female

DRUGS (1)
  1. BREO ELLIPTA [Suspect]
     Active Substance: FLUTICASONE FUROATE\VILANTEROL TRIFENATATE
     Indication: ASTHMA
     Dosage: UNK, U
     Route: 055

REACTIONS (6)
  - Pneumonia [Recovering/Resolving]
  - Condition aggravated [Recovering/Resolving]
  - Salmonellosis [Recovering/Resolving]
  - Sepsis [Recovering/Resolving]
  - Malaise [Recovering/Resolving]
  - Immunodeficiency [Recovering/Resolving]
